FAERS Safety Report 5923512-8 (Version None)
Quarter: 2008Q4

REPORT INFORMATION
  Report Type: 
  Country: None (occurrence: None)
  Receive Date: 20081020
  Receipt Date: 20081007
  Transmission Date: 20090506
  Serious: Yes (Hospitalization)
  Sender: FDA-Public Use
  Company Number: JP-AMGEN-US310028

PATIENT
  Sex: Female
  Weight: 39 kg

DRUGS (3)
  1. ENBREL [Suspect]
     Indication: RHEUMATOID ARTHRITIS
     Route: 058
     Dates: start: 20070417
  2. PREDNISOLONE [Suspect]
     Indication: RHEUMATOID ARTHRITIS
     Route: 048
  3. VOLTAREN [Concomitant]
     Indication: RHEUMATOID ARTHRITIS
     Route: 048

REACTIONS (10)
  - ABSCESS [None]
  - ANAL EROSION [None]
  - ARTHRALGIA [None]
  - BLOOD PRESSURE DECREASED [None]
  - CHEST PAIN [None]
  - COMPRESSION FRACTURE [None]
  - HYPERKERATOSIS [None]
  - LOSS OF CONSCIOUSNESS [None]
  - OSTEOMYELITIS [None]
  - PUBIC RAMI FRACTURE [None]
